FAERS Safety Report 9749375 (Version 3)
Quarter: 2014Q1

REPORT INFORMATION
  Report Type: Spontaneous
  Country: US (occurrence: US)
  Receive Date: 20131212
  Receipt Date: 20140110
  Transmission Date: 20141002
  Serious: Yes (Death, Hospitalization)
  Sender: FDA-Public Use
  Company Number: US-B.I. PHARMACEUTICALS,INC./RIDGEFIELD-2013-BI-41362BP

PATIENT
  Age: 58 Year
  Sex: Male
  Weight: 147 kg

DRUGS (2)
  1. COMBIVENT [Suspect]
     Indication: CHRONIC OBSTRUCTIVE PULMONARY DISEASE
     Route: 055
     Dates: start: 2012
  2. TRAMADOL [Concomitant]
     Indication: PAIN
     Route: 048

REACTIONS (5)
  - Hepatic cirrhosis [Fatal]
  - Alcoholism [Fatal]
  - Pain [Unknown]
  - Asthenia [Unknown]
  - Gait disturbance [Unknown]
